FAERS Safety Report 7536380-8 (Version None)
Quarter: 2011Q2

REPORT INFORMATION
  Report Type: 
  Country: None (occurrence: None)
  Receive Date: 20110602
  Receipt Date: 20110318
  Transmission Date: 20111010
  Serious: Yes (Life-Threatening)
  Sender: FDA-Public Use
  Company Number: 2011AP000913

PATIENT
  Age: 44 Year
  Sex: Female

DRUGS (4)
  1. LAMOTRIGINE [Suspect]
     Indication: PRODUCT USED FOR UNKNOWN INDICATION
     Dosage: 150 MG, QD, PO
     Route: 048
     Dates: start: 20100801
  2. KEPPRA [Suspect]
     Indication: EPILEPSY
     Dosage: 250 MG, BID
     Dates: start: 20110101, end: 20110323
  3. KEPPRA [Suspect]
     Indication: EPILEPSY
     Dosage: 250 MG, BID
     Dates: start: 20110209, end: 20110101
  4. KEPPRA [Suspect]
     Indication: EPILEPSY
     Dosage: 250 MG, BID
     Dates: start: 20110101, end: 20110101

REACTIONS (3)
  - DEPRESSED MOOD [None]
  - SUICIDE ATTEMPT [None]
  - MULTIPLE DRUG OVERDOSE [None]
